FAERS Safety Report 8374456-6 (Version None)
Quarter: 2012Q2

REPORT INFORMATION
  Report Type: 
  Country: None (occurrence: None)
  Receive Date: 20120521
  Receipt Date: 20120510
  Transmission Date: 20120825
  Serious: Yes (Hospitalization)
  Sender: FDA-Public Use
  Company Number: FR-ASTRAZENECA-2012SE30935

PATIENT
  Age: 70 Year
  Sex: Female

DRUGS (5)
  1. NOCTAMIDE [Concomitant]
  2. QUETIAPINE FUMARATE [Suspect]
     Indication: DEPRESSION
     Route: 048
     Dates: start: 20120228, end: 20120401
  3. PRAZEPAM [Concomitant]
  4. ESCITALOPRAM [Concomitant]
  5. VALSARTAN [Concomitant]

REACTIONS (4)
  - VIRAL PERICARDITIS [None]
  - FRACTURE [None]
  - MALAISE [None]
  - FALL [None]
